FAERS Safety Report 8291129-9 (Version None)
Quarter: 2012Q2

REPORT INFORMATION
  Report Type: 
  Country: None (occurrence: None)
  Receive Date: 20120417
  Receipt Date: 20110825
  Transmission Date: 20120825
  Serious: No
  Sender: FDA-Public Use
  Company Number: US-ASTRAZENECA-2011SE51578

PATIENT
  Sex: Male

DRUGS (17)
  1. METOPROLOL TARTRATE [Suspect]
     Route: 048
  2. TIZANIDINE HCL [Concomitant]
  3. CYCLOBENZAPRINE HCL [Concomitant]
  4. HYDROCORTISONE ACETATE [Concomitant]
  5. NYSTATIN [Concomitant]
  6. GLIPIZIDE [Concomitant]
  7. BACLOFEN [Concomitant]
  8. LYRICA [Concomitant]
  9. NEXIUM [Suspect]
     Route: 048
     Dates: start: 20100407
  10. NIASPAN [Concomitant]
  11. ASPIRIN [Concomitant]
  12. GABAPENTIN [Concomitant]
  13. CYMBALTA [Concomitant]
  14. TERAZOSIN HCL [Concomitant]
  15. AMITIZA [Concomitant]
  16. METFORMIN HCL [Concomitant]
  17. SIMVASTATIN [Concomitant]

REACTIONS (3)
  - CONSTIPATION [None]
  - HERPES ZOSTER [None]
  - ANAL FISSURE [None]
